FAERS Safety Report 7077786-3 (Version None)
Quarter: 2010Q4

REPORT INFORMATION
  Report Type: 
  Country: None (occurrence: None)
  Receive Date: 20101101
  Receipt Date: 20101019
  Transmission Date: 20110411
  Serious: Yes (Other)
  Sender: FDA-Public Use
  Company Number: PHHY2010FR65530

PATIENT
  Sex: Male
  Weight: 78 kg

DRUGS (6)
  1. LEPONEX [Suspect]
     Indication: SCHIZOPHRENIA
     Dosage: 100 MG
     Route: 048
     Dates: start: 20100701
  2. LEPONEX [Suspect]
     Dosage: 50 MG
     Route: 048
     Dates: end: 20100923
  3. ESCITALOPRAM OXALATE [Concomitant]
     Indication: DEPRESSION
     Dosage: UNK
     Route: 048
     Dates: start: 20090217
  4. TERCIAN [Concomitant]
  5. DEPAKOTE [Concomitant]
  6. ABILIFY [Concomitant]
     Indication: SCHIZOPHRENIA
     Dosage: UNK
     Route: 048
     Dates: start: 20090601

REACTIONS (3)
  - ANXIETY [None]
  - NEUTROPENIA [None]
  - WITHDRAWAL SYNDROME [None]
